FAERS Safety Report 7144838-9 (Version None)
Quarter: 2010Q4

REPORT INFORMATION
  Report Type: 
  Country: None (occurrence: None)
  Receive Date: 20101208
  Receipt Date: 20101125
  Transmission Date: 20110411
  Serious: Yes (Death, Hospitalization)
  Sender: FDA-Public Use
  Company Number: DE-ELI_LILLY_AND_COMPANY-DE201011006845

PATIENT
  Sex: Female

DRUGS (6)
  1. ZYPREXA [Suspect]
     Indication: SCHIZOPHRENIA
     Dosage: 20 MG, UNK
     Route: 048
     Dates: start: 20090630
  2. ERGENYL [Concomitant]
     Dosage: 2 D/F, UNK
  3. CALCIVIT [Concomitant]
  4. PANTOZOL [Concomitant]
     Dosage: 40 MG, UNK
  5. DIPIPERON [Concomitant]
     Dosage: 40 MG, UNK
  6. FEROSOL [Concomitant]

REACTIONS (3)
  - BURNS SECOND DEGREE [None]
  - CIRCULATORY COLLAPSE [None]
  - SYNCOPE [None]
